FAERS Safety Report 7653412-7 (Version None)
Quarter: 2011Q3

REPORT INFORMATION
  Report Type: 
  Country: None (occurrence: None)
  Receive Date: 20110803
  Receipt Date: 20110729
  Transmission Date: 20111222
  Serious: Yes (Hospitalization)
  Sender: FDA-Public Use
  Company Number: FR-PFIZER INC-2011173117

PATIENT
  Age: 73 Year
  Sex: Female

DRUGS (15)
  1. ASPIRIN [Concomitant]
  2. NEXIUM [Concomitant]
  3. FORLAX [Concomitant]
  4. DOMPERIDONE [Concomitant]
  5. ACETAMINOPHEN [Concomitant]
  6. HUMALOG [Concomitant]
  7. OXYCODONE HCL [Concomitant]
  8. LANSOYL [Concomitant]
  9. AUGMENTIN '125' [Suspect]
     Indication: ABSCESS
     Dosage: 1 G, 3X/DAY
     Route: 048
     Dates: start: 20110509, end: 20110701
  10. LASIX [Concomitant]
  11. LYRICA [Suspect]
     Dosage: 100 MG, 2X/DAY
     Dates: start: 20110315, end: 20110628
  12. ATORVASTATIN CALCIUM [Concomitant]
  13. LANTUS [Concomitant]
  14. ACUPAN [Concomitant]
  15. CALCIPARINE [Concomitant]

REACTIONS (4)
  - CONFUSIONAL STATE [None]
  - ALTERED STATE OF CONSCIOUSNESS [None]
  - ENCEPHALOPATHY [None]
  - SOMNOLENCE [None]
